FAERS Safety Report 13517254 (Version 1)
Quarter: 2017Q2

REPORT INFORMATION
  Report Type: Spontaneous
  Country: US (occurrence: US)
  Receive Date: 20170504
  Receipt Date: 20170504
  Transmission Date: 20170830
  Serious: Yes (Other)
  Sender: FDA-Public Use
  Company Number: None

PATIENT
  Age: 60 Year
  Sex: Female

DRUGS (1)
  1. STELARA [Suspect]
     Active Substance: USTEKINUMAB
     Indication: PSORIASIS
     Dosage: 45MG/.5ML DAY ONE SUBCUTANEOUSLY
     Route: 058
     Dates: start: 20170206

REACTIONS (2)
  - Feeling abnormal [None]
  - Pain in extremity [None]

NARRATIVE: CASE EVENT DATE: 20170504
